FAERS Safety Report 9763993 (Version 1)
Quarter: 2013Q4

REPORT INFORMATION
  Report Type: Spontaneous
  Country: US (occurrence: US)
  Receive Date: 20131216
  Receipt Date: 20131216
  Transmission Date: 20140711
  Serious: No
  Sender: FDA-Public Use
  Company Number: US-BIOGENIDEC-2013BI115597

PATIENT
  Sex: Female
  Weight: 46 kg

DRUGS (13)
  1. TECFIDERA [Suspect]
     Indication: MULTIPLE SCLEROSIS
     Route: 048
     Dates: start: 20131113
  2. TECFIDERA [Suspect]
     Indication: MULTIPLE SCLEROSIS
     Route: 048
  3. CYMBALTA [Concomitant]
  4. BONIVA [Concomitant]
  5. TOPIRAMATE [Concomitant]
  6. PENTASA [Concomitant]
  7. VITAMIN D [Concomitant]
  8. ZINC [Concomitant]
  9. SUMATRIPTAN [Concomitant]
  10. ZOLPIDEM [Concomitant]
  11. LORTAB [Concomitant]
  12. VITAMIN B12 [Concomitant]
  13. CALCIUM CARB WITH VITAMIN D [Concomitant]

REACTIONS (5)
  - Fatigue [Unknown]
  - Decreased appetite [Unknown]
  - Pruritus [Recovered/Resolved]
  - Rash macular [Recovered/Resolved]
  - Flushing [Unknown]
